FAERS Safety Report 15859306 (Version 1)
Quarter: 2018Q4

REPORT INFORMATION
  Report Type: Spontaneous
  Country: US (occurrence: US)
  Receive Date: 20181228
  Receipt Date: 20181228
  Transmission Date: 20190205
  Serious: Yes (Hospitalization)
  Sender: FDA-Public Use
  Company Number: None

PATIENT
  Age: 62 Year
  Sex: Female
  Weight: 73 kg

DRUGS (1)
  1. ASPIRIN (27223) [Suspect]
     Active Substance: ASPIRIN
     Dates: end: 20181118

REACTIONS (12)
  - Hepatic cirrhosis [None]
  - Lung infiltration [None]
  - Chronic obstructive pulmonary disease [None]
  - Hypokalaemia [None]
  - Pulmonary mass [None]
  - Acute respiratory failure [None]
  - Mental status changes [None]
  - Pneumonia [None]
  - Pulmonary fibrosis [None]
  - Septic shock [None]
  - Pleural effusion [None]
  - Anaemia [None]

NARRATIVE: CASE EVENT DATE: 20181119
